APPROVED DRUG PRODUCT: GLIPIZIDE AND METFORMIN HYDROCHLORIDE
Active Ingredient: GLIPIZIDE; METFORMIN HYDROCHLORIDE
Strength: 2.5MG;250MG
Dosage Form/Route: TABLET;ORAL
Application: A077507 | Product #001 | TE Code: AB
Applicant: EPIC PHARMA LLC
Approved: Oct 27, 2005 | RLD: No | RS: No | Type: RX